FAERS Safety Report 5392468-1 (Version None)
Quarter: 2007Q3

REPORT INFORMATION
  Report Type: 
  Country: None (occurrence: None)
  Receive Date: 20070720
  Receipt Date: 20070709
  Transmission Date: 20080115
  Serious: Yes (Hospitalization)
  Sender: FDA-Public Use
  Company Number: US-ROCHE-450381

PATIENT
  Age: 52 Year
  Sex: Male
  Weight: 90.7 kg

DRUGS (16)
  1. PEG-INTERFERON A-2A (RO 25-8310) [Suspect]
     Route: 058
     Dates: start: 20050414, end: 20060311
  2. RIBAVIRIN [Suspect]
     Route: 048
     Dates: start: 20050414, end: 20060311
  3. HALCION [Concomitant]
     Indication: INSOMNIA
     Dosage: TAKEN AT NIGHT.
  4. EFFEXOR XR [Concomitant]
     Indication: DEPRESSION
     Dates: start: 20030101
  5. BUFFERIN [Concomitant]
     Indication: CARDIOVASCULAR EVENT PROPHYLAXIS
     Dates: start: 19750101
  6. MULTIVITAMIN NOS [Concomitant]
     Indication: NUTRITIONAL SUPPORT
     Dates: start: 19730101
  7. PATANOL [Concomitant]
     Dosage: DROP EACH/BOTH EYES.
     Dates: start: 20050928
  8. VITAMIN B-12 [Concomitant]
     Route: 048
     Dates: start: 20050602
  9. VITAMIN B-12 [Concomitant]
     Route: 030
     Dates: start: 20050602
  10. ASCORBIC ACID [Concomitant]
     Dates: start: 19730101
  11. L-LYSINE [Concomitant]
     Dates: start: 19730101
  12. AMINO ACIDS [Concomitant]
     Dates: start: 19730101
  13. COENZYME Q10 [Concomitant]
     Dates: start: 19730101
  14. TAVIST D [Concomitant]
     Dates: start: 20060523
  15. CHLOROPHYLL [Concomitant]
     Dates: start: 20050617
  16. UNSPECIFIED DRUG [Concomitant]
     Dosage: DRUG REPORTED AS ANTI-BIO.
     Dates: start: 20050617

REACTIONS (4)
  - ABDOMINAL WALL INFECTION [None]
  - APPENDICITIS [None]
  - CELLULITIS [None]
  - PERITONEAL ABSCESS [None]
